FAERS Safety Report 6793874-0 (Version None)
Quarter: 2010Q2

REPORT INFORMATION
  Report Type: 
  Country: None (occurrence: None)
  Receive Date: 20100624
  Receipt Date: 20090310
  Transmission Date: 20101027
  Serious: Yes (Other)
  Sender: FDA-Public Use
  Company Number: US-PFIZER INC-2009181213

PATIENT
  Sex: Female
  Weight: 54 kg

DRUGS (8)
  1. PROVERA [Suspect]
     Indication: MENOPAUSE
     Dosage: UNK
     Route: 048
     Dates: start: 19870223, end: 19900712
  2. PREMARIN [Suspect]
     Indication: MENOPAUSE
     Dosage: UNK
     Dates: start: 19870223, end: 19970402
  3. AYGESTIN [Suspect]
     Indication: MENOPAUSE
     Dosage: UNK
     Dates: start: 19900712, end: 19970402
  4. BUSPAR [Concomitant]
     Indication: ANXIETY
     Dosage: UNK
     Dates: start: 19950101
  5. DESYREL [Concomitant]
     Indication: ANTIDEPRESSANT THERAPY
     Dosage: UNK
     Dates: start: 19920301
  6. PROZAC [Concomitant]
     Indication: DEPRESSION
     Dosage: UNK
  7. RESTORIL [Concomitant]
     Indication: INSOMNIA
     Dosage: UNK
  8. TRAZODONE [Concomitant]
     Indication: INSOMNIA
     Dosage: UNK

REACTIONS (1)
  - BREAST CANCER FEMALE [None]
